FAERS Safety Report 9760346 (Version 2)
Quarter: 2015Q3

REPORT INFORMATION
  Report Type: Spontaneous
  Country: US (occurrence: US)
  Receive Date: 20131216
  Receipt Date: 20150806
  Transmission Date: 20151125
  Serious: No
  Sender: FDA-Public Use
  Company Number: US-GILEAD-2010-0029411

PATIENT
  Age: 73 Year
  Sex: Male
  Weight: 72.57 kg

DRUGS (7)
  1. LIPITOR [Concomitant]
     Active Substance: ATORVASTATIN CALCIUM
  2. WARFARIN [Concomitant]
     Active Substance: WARFARIN
  3. GEMFIBROZIL. [Concomitant]
     Active Substance: GEMFIBROZIL
  4. POTASSIUM [Concomitant]
     Active Substance: POTASSIUM
  5. NAC [Concomitant]
  6. LASIX [Concomitant]
     Active Substance: FUROSEMIDE
  7. LETAIRIS [Suspect]
     Active Substance: AMBRISENTAN
     Indication: PULMONARY ARTERIAL HYPERTENSION
     Route: 048
     Dates: start: 20100422

REACTIONS (1)
  - Peripheral swelling [Unknown]

NARRATIVE: CASE EVENT DATE: 20100507
